FAERS Safety Report 10550835 (Version 1)
Quarter: 2014Q4

REPORT INFORMATION
  Report Type: Spontaneous
  Country: GB (occurrence: None)
  Receive Date: 20141027
  Receipt Date: 20141027
  Transmission Date: 20150529
  Serious: Yes (Other)
  Sender: FDA-Public Use
  Company Number: GB-DEXPHARM-20140644

PATIENT
  Age: 45 Year
  Sex: Male

DRUGS (11)
  1. LOFEXIDINE HYDROCHLORIDE. [Suspect]
     Active Substance: LOFEXIDINE HYDROCHLORIDE
     Dates: start: 20140926
  2. BUSCOPAN [Concomitant]
     Active Substance: BUTYLSCOPOLAMINE BROMIDE
  3. OMEPRAZOLE ACTIVE SUBSTANCES: OMEPRAZOLE [Suspect]
     Active Substance: OMEPRAZOLE
     Dates: start: 20140925
  4. TRAMADOL [Concomitant]
     Active Substance: TRAMADOL
  5. COCODAMOL [Concomitant]
     Active Substance: ACETAMINOPHEN\CODEINE PHOSPHATE
  6. NAPROXEN. [Concomitant]
     Active Substance: NAPROXEN
  7. GAVISCON [Concomitant]
     Active Substance: ALUMINUM HYDROXIDE\MAGNESIUM CARBONATE
  8. MIRTAZAPINE. [Concomitant]
     Active Substance: MIRTAZAPINE
  9. PREGABALIN. [Concomitant]
     Active Substance: PREGABALIN
  10. IBUPROFEN. [Concomitant]
     Active Substance: IBUPROFEN
  11. PARACETAMOL [Concomitant]
     Active Substance: ACETAMINOPHEN

REACTIONS (2)
  - Reaction to drug excipients [None]
  - Rash macular [None]

NARRATIVE: CASE EVENT DATE: 20140928
